FAERS Safety Report 8576295-X (Version None)
Quarter: 2012Q3

REPORT INFORMATION
  Report Type: 
  Country: None (occurrence: None)
  Receive Date: 20120724
  Receipt Date: 20120713
  Transmission Date: 20120928
  Serious: Yes (Other)
  Sender: FDA-Public Use
  Company Number: AUR-APL-2012-03038

PATIENT
  Age: 90 Year
  Sex: Female
  Weight: 78 kg

DRUGS (9)
  1. ASPIRIN [Concomitant]
  2. CLOPIDOGREL [Concomitant]
  3. RAMIPRIL [Suspect]
     Indication: PRODUCT USED FOR UNKNOWN INDICATION
     Dates: start: 20120326
  4. ISOSORBIDE MONONITRATE [Concomitant]
  5. LANSOPRAZOLE [Concomitant]
  6. SIMVASTATIN [Concomitant]
  7. BISOPROLOL FUMARATE [Concomitant]
  8. FUROSEMIDE [Concomitant]
  9. LEVOTHYROXINE SODIUM [Concomitant]

REACTIONS (2)
  - EXERCISE TEST ABNORMAL [None]
  - JOINT SWELLING [None]
